FAERS Safety Report 6643202-6 (Version None)
Quarter: 2010Q1

REPORT INFORMATION
  Report Type: 
  Country: None (occurrence: None)
  Receive Date: 20100319
  Receipt Date: 20100315
  Transmission Date: 20100710
  Serious: Yes (Death, Other)
  Sender: FDA-Public Use
  Company Number: PHEH2006US12725

PATIENT
  Sex: Male

DRUGS (6)
  1. ZOMETA [Suspect]
     Indication: BONE DENSITY DECREASED
     Dosage: UNK
     Dates: start: 20040501, end: 20060307
  2. SELENIUM [Concomitant]
  3. VITAMIN E [Concomitant]
  4. TOPRAL [Concomitant]
  5. COUMADIN [Concomitant]
  6. VIOXX [Concomitant]

REACTIONS (14)
  - ANXIETY [None]
  - BONE DISORDER [None]
  - DEATH [None]
  - GINGIVAL RECESSION [None]
  - INJURY [None]
  - MASTICATION DISORDER [None]
  - OSTEONECROSIS [None]
  - PAIN [None]
  - PHYSICAL DISABILITY [None]
  - STOMATITIS [None]
  - TOOTH ABSCESS [None]
  - TOOTH EXTRACTION [None]
  - TOOTH FRACTURE [None]
  - TOOTHACHE [None]
